FAERS Safety Report 6673301-4 (Version None)
Quarter: 2010Q2

REPORT INFORMATION
  Report Type: 
  Country: None (occurrence: None)
  Receive Date: 20100408
  Receipt Date: 20100331
  Transmission Date: 20101027
  Serious: Yes (Life-Threatening)
  Sender: FDA-Public Use
  Company Number: IT-BAXTER-2009BH018339

PATIENT
  Age: 76 Year
  Sex: Female

DRUGS (2)
  1. LACTATED RINGER'S [Suspect]
     Indication: DRUG USE FOR UNKNOWN INDICATION
     Route: 042
     Dates: start: 20091028, end: 20091105
  2. OLICLINOMEL [Concomitant]
     Indication: ELECTROLYTE IMBALANCE
     Route: 042

REACTIONS (3)
  - ENTERITIS [None]
  - PRURITUS GENERALISED [None]
  - RASH [None]
